FAERS Safety Report 8589734-5 (Version None)
Quarter: 2012Q3

REPORT INFORMATION
  Report Type: 
  Country: None (occurrence: None)
  Receive Date: 20120813
  Receipt Date: 20120807
  Transmission Date: 20120928
  Serious: Yes (Hospitalization)
  Sender: FDA-Public Use
  Company Number: US-AMGEN-USASP2012049976

PATIENT
  Age: 61 Year
  Sex: Female

DRUGS (1)
  1. ENBREL [Suspect]
     Indication: PSORIATIC ARTHROPATHY
     Dosage: 50 MG, QWK
     Dates: start: 20110309

REACTIONS (6)
  - BUNION [None]
  - SPINAL DEFORMITY [None]
  - EXOSTOSIS [None]
  - HERPES ZOSTER [None]
  - FOOT DEFORMITY [None]
  - LOCALISED INFECTION [None]
